FAERS Safety Report 18821456 (Version 1)
Quarter: 2021Q1

REPORT INFORMATION
  Report Type: Spontaneous
  Country: US (occurrence: US)
  Receive Date: 20210201
  Receipt Date: 20210201
  Transmission Date: 20210419
  Serious: Yes (Hospitalization)
  Sender: FDA-Public Use
  Company Number: None

PATIENT
  Age: 67 Year
  Sex: Male
  Weight: 88.45 kg

DRUGS (1)
  1. NIVOLUMAB (NIVOLUMAB 10MG/ML INJ, SOLN) [Suspect]
     Active Substance: NIVOLUMAB
     Indication: METASTATIC MALIGNANT MELANOMA
     Dosage: ?          OTHER FREQUENCY:OTHER;OTHER ROUTE:IV?
     Dates: start: 20200602

REACTIONS (19)
  - Dyspnoea exertional [None]
  - Laboratory test abnormal [None]
  - Diarrhoea [None]
  - Hypokalaemia [None]
  - Hypomagnesaemia [None]
  - Vomiting [None]
  - Tachycardia [None]
  - Fall [None]
  - Diabetic ketoacidosis [None]
  - Abdominal pain [None]
  - Head injury [None]
  - Headache [None]
  - Leukocytosis [None]
  - Asthenia [None]
  - Dizziness [None]
  - Visual impairment [None]
  - Acute kidney injury [None]
  - Nausea [None]
  - Hypotension [None]

NARRATIVE: CASE EVENT DATE: 20200915
